FAERS Safety Report 16164603 (Version 1)
Quarter: 2019Q2

REPORT INFORMATION
  Report Type: Spontaneous
  Country: FR (occurrence: FR)
  Receive Date: 20190405
  Receipt Date: 20190405
  Transmission Date: 20190711
  Serious: Yes (Other)
  Sender: FDA-Public Use
  Company Number: FR-JNJFOC-20190402239

PATIENT
  Age: 45 Year
  Sex: Female

DRUGS (2)
  1. DUROGESIC [Suspect]
     Active Substance: FENTANYL
     Indication: NEURALGIA
     Route: 065
     Dates: start: 201903, end: 20190328
  2. DUROGESIC [Suspect]
     Active Substance: FENTANYL
     Indication: SCIATICA
     Route: 065
     Dates: start: 201903, end: 20190328

REACTIONS (3)
  - Hypoglycaemic coma [Recovered/Resolved]
  - Product use in unapproved indication [Unknown]
  - Off label use [Unknown]

NARRATIVE: CASE EVENT DATE: 20190329
